FAERS Safety Report 12471542 (Version 1)
Quarter: 2016Q2

REPORT INFORMATION
  Report Type: Spontaneous
  Country: DK (occurrence: DK)
  Receive Date: 20160616
  Receipt Date: 20160616
  Transmission Date: 20160815
  Serious: Yes (Hospitalization, Other)
  Sender: FDA-Public Use
  Company Number: DK-ELI_LILLY_AND_COMPANY-DK201512001744

PATIENT
  Age: 27 Year
  Sex: Male
  Weight: 80 kg

DRUGS (4)
  1. ZYPADHERA [Suspect]
     Active Substance: OLANZAPINE PAMOATE
     Indication: SCHIZOPHRENIA
     Dosage: 405 MG, MONTHLY (1/M)
     Route: 030
     Dates: start: 201411
  2. OLANZAPIN ACCORD [Suspect]
     Active Substance: OLANZAPINE
     Indication: SCHIZOPHRENIA
     Dosage: 10 MG, QD
     Route: 048
     Dates: end: 20151211
  3. ZYPADHERA [Suspect]
     Active Substance: OLANZAPINE PAMOATE
     Dosage: 300 MG, MONTHLY (1/M)
     Route: 030
     Dates: start: 201411
  4. OLANZAPIN ACCORD [Suspect]
     Active Substance: OLANZAPINE
     Dosage: 5 MG, QD
     Route: 048
     Dates: start: 20151212

REACTIONS (16)
  - Exercise tolerance decreased [Unknown]
  - General physical health deterioration [Unknown]
  - Delirium [Not Recovered/Not Resolved]
  - Aggression [Unknown]
  - Muscle spasms [Not Recovered/Not Resolved]
  - Blood pressure immeasurable [Unknown]
  - Confusional state [Not Recovered/Not Resolved]
  - Intentional self-injury [Unknown]
  - Restlessness [Not Recovered/Not Resolved]
  - Akathisia [Not Recovered/Not Resolved]
  - Agitation [Not Recovered/Not Resolved]
  - Muscle contractions involuntary [Not Recovered/Not Resolved]
  - Sleep disorder [Not Recovered/Not Resolved]
  - Somnolence [Not Recovered/Not Resolved]
  - Feeding disorder [Unknown]
  - Tremor [Not Recovered/Not Resolved]

NARRATIVE: CASE EVENT DATE: 201411
